FAERS Safety Report 8362796-6 (Version None)
Quarter: 2012Q2

REPORT INFORMATION
  Report Type: 
  Country: None (occurrence: None)
  Receive Date: 20120516
  Receipt Date: 20120510
  Transmission Date: 20120825
  Serious: Yes (Hospitalization)
  Sender: FDA-Public Use
  Company Number: PHHY2012ES039716

PATIENT
  Age: 84 Year
  Sex: Female

DRUGS (4)
  1. AZILECT [Suspect]
     Indication: PARKINSON'S DISEASE
     Dosage: 1 MG, DAILY
  2. ATACAND [Concomitant]
     Dosage: 16/12.5 MG
  3. STALEVO 100 [Suspect]
     Indication: PARKINSON'S DISEASE
     Dosage: 200/50/12.5 MG EVERY 8 HOURS
     Route: 048
     Dates: start: 20111101, end: 20120101
  4. LEXATIN [Concomitant]
     Dosage: 1 MG, DAILY

REACTIONS (2)
  - RENAL FAILURE CHRONIC [None]
  - DIARRHOEA [None]
